FAERS Safety Report 25386433 (Version 6)
Quarter: 2025Q3

REPORT INFORMATION
  Report Type: Report from Study
  Country: KR (occurrence: KR)
  Receive Date: 20250602
  Receipt Date: 20250903
  Transmission Date: 20251020
  Serious: Yes (Death, Other)
  Sender: NOVARTIS
  Company Number: KR-002147023-NVSC2025KR064871

PATIENT
  Age: 18 Year
  Sex: Male
  Weight: 64.5 kg

DRUGS (46)
  1. KYMRIAH [Suspect]
     Active Substance: TISAGENLECLEUCEL
     Indication: B-cell type acute leukaemia
     Route: 042
     Dates: start: 20240416, end: 20240416
  2. BLINCYTO [Concomitant]
     Active Substance: BLINATUMOMAB
     Indication: Induction and maintenance of anaesthesia
     Route: 042
     Dates: start: 20240821, end: 20240826
  3. BLINCYTO [Concomitant]
     Active Substance: BLINATUMOMAB
     Dosage: 10.375 UG, QD
     Route: 042
     Dates: start: 20240827, end: 20240827
  4. BLINCYTO [Concomitant]
     Active Substance: BLINATUMOMAB
     Dosage: 32.5 UG, QD
     Route: 042
     Dates: start: 20240828, end: 20240830
  5. CARDIOXANE [Concomitant]
     Active Substance: DEXRAZOXANE HYDROCHLORIDE
     Indication: Induction and maintenance of anaesthesia
     Dosage: 1000 MG, QD
     Route: 042
     Dates: start: 20240924, end: 20240924
  6. HYDROCORTISONE SODIUM SUCCINATE [Concomitant]
     Active Substance: HYDROCORTISONE SODIUM SUCCINATE
     Indication: Induction and maintenance of anaesthesia
     Dosage: 15 MG, QD, IT
     Route: 065
     Dates: start: 20240819, end: 20240819
  7. HYDROCORTISONE SODIUM SUCCINATE [Concomitant]
     Active Substance: HYDROCORTISONE SODIUM SUCCINATE
     Indication: Septic shock
     Route: 042
     Dates: start: 20250312, end: 20250312
  8. DOXORUBICIN [Concomitant]
     Active Substance: DOXORUBICIN
     Indication: Induction and maintenance of anaesthesia
     Dosage: 100 MG, QD
     Route: 042
     Dates: start: 20240924, end: 20240924
  9. Eps [Concomitant]
     Indication: Radiotherapy
     Dosage: 160 MG, QD
     Route: 042
     Dates: start: 20241120, end: 20241124
  10. CYCLOPHOSPHAMIDE [Concomitant]
     Active Substance: CYCLOPHOSPHAMIDE
     Indication: Radiotherapy
     Dosage: 690 MG, QD
     Route: 042
     Dates: start: 20241120, end: 20241124
  11. FLUDARA [Concomitant]
     Active Substance: FLUDARABINE PHOSPHATE
     Indication: Induction and maintenance of anaesthesia
     Dosage: 40 MG, QD
     Route: 042
     Dates: start: 20250304, end: 20250306
  12. FLUDARA [Concomitant]
     Active Substance: FLUDARABINE PHOSPHATE
     Dosage: 49 MG, QD
     Route: 042
     Dates: start: 20250402, end: 20250406
  13. ASPARAGINASE [Concomitant]
     Active Substance: ASPARAGINASE
     Indication: Induction and maintenance of anaesthesia
     Dosage: UNK, QD, 10000KU
     Route: 030
     Dates: start: 20240927, end: 20241105
  14. ASPARAGINASE [Concomitant]
     Active Substance: ASPARAGINASE
     Indication: Radiotherapy
     Dosage: UNK, QD, 9500KU
     Route: 030
     Dates: start: 20250104, end: 20250118
  15. Mitron [Concomitant]
     Indication: Induction and maintenance of anaesthesia
     Dosage: 16 MG, QD
     Route: 042
     Dates: start: 20250304, end: 20250306
  16. NAVELBINE [Concomitant]
     Active Substance: VINORELBINE TARTRATE
     Indication: Induction and maintenance of anaesthesia
     Dosage: 40 MG, QD
     Route: 042
     Dates: start: 20250304, end: 20250311
  17. CYTARABINE [Concomitant]
     Active Substance: CYTARABINE
     Indication: Induction and maintenance of anaesthesia
     Dosage: 30 MG, QD, IT
     Route: 065
     Dates: start: 20240819, end: 20240819
  18. CYTARABINE [Concomitant]
     Active Substance: CYTARABINE
     Indication: Radiotherapy
     Dosage: 70 MG, QD, IT
     Route: 065
     Dates: start: 20240924, end: 20240924
  19. CYTARABINE [Concomitant]
     Active Substance: CYTARABINE
     Dosage: 4730 MG, BID
     Route: 042
     Dates: start: 20250103, end: 20250118
  20. CYTARABINE [Concomitant]
     Active Substance: CYTARABINE
     Indication: Induction and maintenance of anaesthesia
     Dosage: 3260 MG, QD
     Route: 042
     Dates: start: 20250402, end: 20250406
  21. CYTARABINE [Concomitant]
     Active Substance: CYTARABINE
     Dosage: 5100 MG, QD
     Route: 042
     Dates: start: 20240831, end: 20240903
  22. METHOTREXATE SODIUM [Concomitant]
     Active Substance: METHOTREXATE SODIUM
     Indication: Induction and maintenance of anaesthesia
     Dosage: 15 MG, QD, IT
     Route: 065
     Dates: start: 20240819, end: 20240819
  23. METHOTREXATE SODIUM [Concomitant]
     Active Substance: METHOTREXATE SODIUM
     Indication: Radiotherapy
     Dosage: 15 MG, QD, IT
     Route: 065
     Dates: start: 20241028, end: 20241028
  24. METHOTREXATE SODIUM [Concomitant]
     Active Substance: METHOTREXATE SODIUM
     Dosage: 15 MG, QD, IT
     Route: 065
     Dates: start: 20241120, end: 20241211
  25. METHOTREXATE SODIUM [Concomitant]
     Active Substance: METHOTREXATE SODIUM
     Dosage: 15 MG, QD, IT
     Route: 065
     Dates: start: 20250218, end: 20250218
  26. METHOTREXATE SODIUM [Concomitant]
     Active Substance: METHOTREXATE SODIUM
     Indication: Radiotherapy
     Dosage: 7960 MG, QD
     Route: 042
     Dates: start: 20241211, end: 20241211
  27. VINCRISTINE SULFATE [Concomitant]
     Active Substance: VINCRISTINE SULFATE
     Indication: Induction and maintenance of anaesthesia
     Dosage: 2 MG, QD
     Route: 042
     Dates: start: 20240924, end: 20241104
  28. VIDAZA [Concomitant]
     Active Substance: AZACITIDINE
     Indication: Induction and maintenance of anaesthesia
     Dosage: 165 MG, QD
     Route: 042
     Dates: start: 20250218, end: 20250222
  29. VELCADE [Concomitant]
     Active Substance: BORTEZOMIB
     Indication: Induction and maintenance of anaesthesia
     Dosage: 2.2 MG, QD
     Route: 042
     Dates: start: 20240924, end: 20241004
  30. VELCADE [Concomitant]
     Active Substance: BORTEZOMIB
     Indication: Radiotherapy
     Dosage: 2 MG, QD
     Route: 042
     Dates: start: 20241120, end: 20241127
  31. VENETOCLAX [Concomitant]
     Active Substance: VENETOCLAX
     Indication: Induction and maintenance of anaesthesia
     Dosage: 100 MG, QD
     Route: 048
     Dates: start: 20240218, end: 20240218
  32. VENETOCLAX [Concomitant]
     Active Substance: VENETOCLAX
     Dosage: 200 MG, QD
     Route: 048
     Dates: start: 20250219, end: 20250219
  33. VENETOCLAX [Concomitant]
     Active Substance: VENETOCLAX
     Dosage: 400 MG, QD
     Route: 048
     Dates: start: 20250220, end: 20250317
  34. Samnam loperamide [Concomitant]
     Indication: Diarrhoea
     Dosage: 2 MG, QD
     Route: 048
     Dates: start: 20250424
  35. ALDACTONE [Concomitant]
     Active Substance: SPIRONOLACTONE
     Indication: Ascites
     Dosage: 25 MG, BID
     Route: 048
     Dates: start: 20250205, end: 20250213
  36. Godex [Concomitant]
     Indication: Blood bilirubin increased
     Dosage: 1 DOSAGE FORM, TID
     Route: 048
     Dates: start: 20250417, end: 20250525
  37. METHYLPREDNISOLONE [Concomitant]
     Active Substance: METHYLPREDNISOLONE
     Indication: Blood bilirubin increased
     Dosage: 50 MG, BID
     Route: 042
     Dates: start: 20250421, end: 20250525
  38. METHYLPREDNISOLONE [Concomitant]
     Active Substance: METHYLPREDNISOLONE
     Dosage: 30 MG, BID
     Route: 042
     Dates: start: 20250417, end: 20250420
  39. VANCOCIN [Concomitant]
     Active Substance: VANCOMYCIN HYDROCHLORIDE
     Indication: Septic shock
     Dosage: 800 MG, QID
     Route: 042
     Dates: start: 20250312, end: 20250326
  40. Yuhan dexamethasone [Concomitant]
     Indication: Induction and maintenance of anaesthesia
     Dosage: 11.3 DOSAGE FORM, TID
     Route: 048
     Dates: start: 20240924, end: 20241007
  41. Yuhan dexamethasone [Concomitant]
     Dosage: 10 MG, BID
     Route: 048
     Dates: start: 20250304, end: 20250310
  42. Norpin [Concomitant]
     Indication: Septic shock
     Route: 042
     Dates: start: 20250312, end: 20250312
  43. Acetphen premix [Concomitant]
     Indication: Product used for unknown indication
     Dosage: 900 MG, QD
     Route: 042
     Dates: start: 20250312, end: 20250314
  44. NEXIUM [Concomitant]
     Active Substance: ESOMEPRAZOLE MAGNESIUM
     Indication: Upper gastrointestinal haemorrhage
     Dosage: 80 MG, QD
     Route: 042
     Dates: start: 20250510, end: 20250525
  45. TRANEXAMIC ACID [Concomitant]
     Active Substance: TRANEXAMIC ACID
     Indication: Lower gastrointestinal haemorrhage
     Dosage: 500 MG, QD
     Route: 042
     Dates: start: 20250503, end: 20250525
  46. ATIVAN [Concomitant]
     Active Substance: LORAZEPAM
     Indication: Posterior reversible encephalopathy syndrome
     Dosage: 2 MG, QD
     Route: 042
     Dates: start: 20250506, end: 20250506

REACTIONS (11)
  - B-cell type acute leukaemia [Fatal]
  - Malignant neoplasm progression [Fatal]
  - Graft versus host disease [Fatal]
  - Organ failure [Fatal]
  - Bone pain [Fatal]
  - Hypoxia [Recovered/Resolved]
  - Syncope [Recovered/Resolved]
  - Non-cardiac chest pain [Recovered/Resolved]
  - COVID-19 [Recovered/Resolved]
  - Stomatitis [Recovered/Resolved]
  - Cellulitis [Recovered/Resolved]

NARRATIVE: CASE EVENT DATE: 20240417
